FAERS Safety Report 5338453-7 (Version None)
Quarter: 2007Q2

REPORT INFORMATION
  Report Type: 
  Country: None (occurrence: None)
  Receive Date: 20070405
  Receipt Date: 20061108
  Transmission Date: 20071010
  Serious: No
  Sender: FDA-Public Use
  Company Number: US200611001730

PATIENT
  Age: 45 Year
  Sex: Female

DRUGS (4)
  1. CYMBALTA [Suspect]
     Indication: ANXIETY
     Dosage: SEE IMAGE
     Route: 048
     Dates: start: 20061009, end: 20061103
  2. CYMBALTA [Suspect]
     Indication: ANXIETY
     Dosage: SEE IMAGE
     Route: 048
     Dates: start: 20061104
  3. KLONOPIN [Concomitant]
  4. SEROQUEL [Concomitant]

REACTIONS (7)
  - AGITATION [None]
  - ANXIETY [None]
  - ASTHENIA [None]
  - DISTURBANCE IN ATTENTION [None]
  - ENERGY INCREASED [None]
  - HEART RATE INCREASED [None]
  - NERVOUSNESS [None]
